FAERS Safety Report 23907564 (Version 1)
Quarter: 2024Q2

REPORT INFORMATION
  Report Type: Other
  Country: RU (occurrence: None)
  Receive Date: 20240528
  Receipt Date: 20240528
  Transmission Date: 20240716
  Serious: Yes (Life-Threatening, Other)
  Sender: FDA-Public Use
  Company Number: RU-ROCHE-3525002

PATIENT
  Age: 45 Year
  Sex: Male

DRUGS (18)
  1. GLOFITAMAB [Suspect]
     Active Substance: GLOFITAMAB
     Indication: Product used for unknown indication
     Route: 065
     Dates: start: 20240219
  2. GLOFITAMAB [Suspect]
     Active Substance: GLOFITAMAB
     Dosage: 10MG/DAY
     Route: 065
     Dates: start: 20240226
  3. GLOFITAMAB [Suspect]
     Active Substance: GLOFITAMAB
     Dosage: 30 MG/DAY
     Route: 065
     Dates: start: 20240304
  4. OBINUTUZUMAB [Suspect]
     Active Substance: OBINUTUZUMAB
     Indication: Product used for unknown indication
     Route: 042
     Dates: start: 20240212
  5. OBINUTUZUMAB [Suspect]
     Active Substance: OBINUTUZUMAB
     Route: 042
     Dates: start: 20240213
  6. METHYLPREDNISOLONE [Concomitant]
     Active Substance: METHYLPREDNISOLONE
     Dates: start: 20240212
  7. METHYLPREDNISOLONE [Concomitant]
     Active Substance: METHYLPREDNISOLONE
     Dates: start: 20240213
  8. ACETAMINOPHEN [Concomitant]
     Active Substance: ACETAMINOPHEN
     Dates: start: 20240212
  9. ACETAMINOPHEN [Concomitant]
     Active Substance: ACETAMINOPHEN
     Dates: start: 20240213
  10. DIPHENHYDRAMINE [Concomitant]
     Active Substance: DIPHENHYDRAMINE
     Dates: start: 20240212
  11. DIPHENHYDRAMINE [Concomitant]
     Active Substance: DIPHENHYDRAMINE
     Dates: start: 20240213
  12. DIPHENHYDRAMINE [Concomitant]
     Active Substance: DIPHENHYDRAMINE
     Dates: start: 20240219
  13. DEXAMETHASONE [Concomitant]
     Active Substance: DEXAMETHASONE
  14. ACETAMINOPHEN [Concomitant]
     Active Substance: ACETAMINOPHEN
  15. MEROPENEM [Concomitant]
     Active Substance: MEROPENEM
  16. VANCOMYCIN [Concomitant]
     Active Substance: VANCOMYCIN
     Dates: start: 20240201, end: 20240214
  17. ALLOPURINOL [Concomitant]
     Active Substance: ALLOPURINOL
  18. OMEPRAZOLE [Concomitant]
     Active Substance: DONEPEZIL HYDROCHLORIDE\OMEPRAZOLE\OMEPRAZOLE MAGNESIUM

REACTIONS (10)
  - Cytokine release syndrome [Recovered/Resolved]
  - Sepsis [Recovered/Resolved]
  - Acute kidney injury [Recovered/Resolved]
  - Hypocoagulable state [Recovered/Resolved]
  - Hyperlactacidaemia [Recovered/Resolved]
  - Septic shock [Recovered/Resolved]
  - Multiple organ dysfunction syndrome [Recovered/Resolved]
  - Cardiac failure [Recovered/Resolved]
  - Hepatic failure [Recovered/Resolved]
  - Vasoplegia syndrome [Unknown]

NARRATIVE: CASE EVENT DATE: 20240220
